FAERS Safety Report 8446395-3 (Version None)
Quarter: 2012Q2

REPORT INFORMATION
  Report Type: 
  Country: None (occurrence: None)
  Receive Date: 20120618
  Receipt Date: 20120405
  Transmission Date: 20120825
  Serious: Yes (Other)
  Sender: FDA-Public Use
  Company Number: JP-FRI-1000031432

PATIENT
  Sex: Male

DRUGS (4)
  1. MEILAX [Concomitant]
     Indication: PRODUCT USED FOR UNKNOWN INDICATION
     Dosage: 2 MG
     Route: 048
     Dates: start: 20111017, end: 20120424
  2. LEXAPRO [Suspect]
     Dosage: 20 MG
     Route: 048
     Dates: start: 20120213, end: 20120402
  3. LEXAPRO [Suspect]
     Indication: DEPRESSION
     Dosage: 10 MG
     Route: 048
     Dates: start: 20120126, end: 20120212
  4. LORAZEPAM [Concomitant]
     Indication: PRODUCT USED FOR UNKNOWN INDICATION
     Dosage: 1.5 MG
     Route: 048
     Dates: start: 20101222, end: 20120424

REACTIONS (3)
  - TREMOR [None]
  - DYSPNOEA [None]
  - CHILLS [None]
